FAERS Safety Report 12000504 (Version 1)
Quarter: 2016Q1

REPORT INFORMATION
  Report Type: Report from Study
  Country: US (occurrence: US)
  Receive Date: 20160204
  Receipt Date: 20160204
  Transmission Date: 20160526
  Serious: No
  Sender: FDA-Public Use
  Company Number: US-ABBVIE-15K-163-1420995-00

PATIENT
  Age: 23 Year
  Sex: Female

DRUGS (3)
  1. ALBUTEROL. [Concomitant]
     Active Substance: ALBUTEROL
     Indication: ASTHMA
     Dosage: NEBULIZER
  2. HUMIRA [Suspect]
     Active Substance: ADALIMUMAB
     Route: 065
  3. HUMIRA [Suspect]
     Active Substance: ADALIMUMAB
     Indication: CROHN^S DISEASE
     Dosage: INITIAL LOADING DOSE
     Route: 065
     Dates: start: 20141206, end: 20141206

REACTIONS (10)
  - Nasopharyngitis [Unknown]
  - Nasal congestion [Unknown]
  - Crohn^s disease [Unknown]
  - Rash generalised [Recovered/Resolved]
  - Dyspnoea [Unknown]
  - Sinus congestion [Unknown]
  - Sinusitis [Unknown]
  - Cough [Unknown]
  - Pharyngeal oedema [Unknown]
  - Oropharyngeal pain [Unknown]

NARRATIVE: CASE EVENT DATE: 20141208
